FAERS Safety Report 14706997 (Version 1)
Quarter: 2018Q2

REPORT INFORMATION
  Report Type: Report from Study
  Country: IT (occurrence: IT)
  Receive Date: 20180403
  Receipt Date: 20180403
  Transmission Date: 20180711
  Serious: Yes (Hospitalization)
  Sender: FDA-Public Use
  Company Number: IT-ROCHE-1863603

PATIENT
  Age: 48 Year
  Sex: Male
  Weight: 73 kg

DRUGS (12)
  1. RAMIPRIL HCT [Concomitant]
     Active Substance: HYDROCHLOROTHIAZIDE\RAMIPRIL
     Indication: HYPERTENSION
     Dosage: 2.5/12.5 MG
     Route: 048
     Dates: start: 2012
  2. AMOXICILLINA E ACIDO CLAVULANICO SANDOZ [Concomitant]
     Active Substance: AMOXICILLIN\CLAVULANATE POTASSIUM
     Indication: PYREXIA
     Route: 048
     Dates: start: 201712, end: 201712
  3. ACETILCISTEINA [Concomitant]
     Active Substance: ACETYLCYSTEINE
     Indication: COUGH
     Dosage: 1 TABLET
     Route: 048
     Dates: start: 201709
  4. BEVACIZUMAB. [Suspect]
     Active Substance: BEVACIZUMAB
     Indication: RENAL CELL CARCINOMA
     Dosage: MOST RECENT DOSE (1000 MG) ADMINISTERED ON 28/NOV/2016, PRIOR TO THE EVENT
     Route: 042
     Dates: start: 20160512
  5. XANAX [Concomitant]
     Active Substance: ALPRAZOLAM
     Indication: AGITATION
     Route: 048
     Dates: start: 20160606
  6. NORVASC [Concomitant]
     Active Substance: AMLODIPINE BESYLATE
     Indication: HYPERTENSION
     Route: 048
     Dates: start: 20160919
  7. PHYSIOLOGICAL SALINE [Concomitant]
     Indication: DIARRHOEA
     Route: 042
     Dates: start: 20161201, end: 20161201
  8. ATEZOLIZUMAB. [Suspect]
     Active Substance: ATEZOLIZUMAB
     Indication: RENAL CELL CARCINOMA
     Dosage: MOST RECENT DOSE (1200 MG) ADMINISTERED ON 28/NOV/2016, PRIOR TO THE EVENT?INFUSION ON DAYS 1 AND 22
     Route: 042
     Dates: start: 20160512
  9. LOPERAMIDE [Concomitant]
     Active Substance: LOPERAMIDE
     Indication: DIARRHOEA
     Route: 065
     Dates: start: 20160819
  10. LEVOSULPIRIDE [Concomitant]
     Active Substance: LEVOSULPIRIDE
     Indication: PAIN PROPHYLAXIS
     Route: 048
     Dates: start: 20160506
  11. LANSOPRAZOLE. [Concomitant]
     Active Substance: LANSOPRAZOLE
     Route: 048
     Dates: start: 20160606
  12. PARACETAMOL/CODEINE [Concomitant]
     Active Substance: ACETAMINOPHEN\CODEINE PHOSPHATE
     Indication: PAIN
     Dosage: 500/30 MG
     Route: 048
     Dates: start: 20150404

REACTIONS (1)
  - Cholecystitis [Recovered/Resolved]

NARRATIVE: CASE EVENT DATE: 20161130
